FAERS Safety Report 18906978 (Version 3)
Quarter: 2021Q3

REPORT INFORMATION
  Report Type: Spontaneous
  Country: US (occurrence: US)
  Receive Date: 20210217
  Receipt Date: 20210827
  Transmission Date: 20211014
  Serious: No
  Sender: FDA-Public Use
  Company Number: US-VIFOR (INTERNATIONAL) INC.-VIT-2021-00765

PATIENT
  Age: 65 Year
  Sex: Female
  Weight: 95.34 kg

DRUGS (13)
  1. NIFEDIPINE. [Concomitant]
     Active Substance: NIFEDIPINE
  2. LASIX [Concomitant]
     Active Substance: FUROSEMIDE
  3. SOLIQUA 100/33 [Concomitant]
     Active Substance: INSULIN GLARGINE\LIXISENATIDE
     Dosage: 100?33 UNITS
  4. LABETALOL [Concomitant]
     Active Substance: LABETALOL\LABETALOL HYDROCHLORIDE
  5. MIRALAX [Concomitant]
     Active Substance: POLYETHYLENE GLYCOL 3350
  6. LIPITOR [Concomitant]
     Active Substance: ATORVASTATIN CALCIUM
  7. ASPIRIN. [Concomitant]
     Active Substance: ASPIRIN
  8. VELTASSA [Suspect]
     Active Substance: PATIROMER
     Indication: HYPERKALAEMIA
     Route: 048
     Dates: start: 20200911
  9. ALLOPURINOL. [Concomitant]
     Active Substance: ALLOPURINOL
  10. LISINOPRIL. [Concomitant]
     Active Substance: LISINOPRIL
  11. ATORVASTATIN [Concomitant]
     Active Substance: ATORVASTATIN
  12. AURYXIA [Concomitant]
     Active Substance: TETRAFERRIC TRICITRATE DECAHYDRATE
  13. JANUVIA [Concomitant]
     Active Substance: SITAGLIPTIN PHOSPHATE

REACTIONS (4)
  - Malaise [Unknown]
  - Blood potassium increased [Unknown]
  - Arteriovenous fistula operation [Unknown]
  - Product dose omission in error [Unknown]

NARRATIVE: CASE EVENT DATE: 20210803
